FAERS Safety Report 22164803 (Version 1)
Quarter: 2023Q2

REPORT INFORMATION
  Report Type: Spontaneous
  Country: GB (occurrence: GB)
  Receive Date: 20230403
  Receipt Date: 20230403
  Transmission Date: 20230721
  Serious: Yes (Other)
  Sender: FDA-Public Use
  Company Number: GB-MHRA-MED-202303230915221920-YPVTW

PATIENT

DRUGS (1)
  1. ANADIN EXTRA [Suspect]
     Active Substance: ACETAMINOPHEN\ASPIRIN\CAFFEINE
     Indication: Influenza
     Dosage: UNK, (AS ADVISED IN INSTRUCTIONS)
     Dates: start: 20230319

REACTIONS (5)
  - Pharyngeal swelling [Recovered/Resolved]
  - Eye swelling [Recovering/Resolving]
  - Oral discomfort [Recovered/Resolved]
  - Chest pain [Recovered/Resolved]
  - Paraesthesia oral [Unknown]

NARRATIVE: CASE EVENT DATE: 20230320
